FAERS Safety Report 7052430-X (Version None)
Quarter: 2010Q4

REPORT INFORMATION
  Report Type: 
  Country: None (occurrence: None)
  Receive Date: 20101019
  Receipt Date: 20101012
  Transmission Date: 20110411
  Serious: Yes (Hospitalization, Other)
  Sender: FDA-Public Use
  Company Number: JP-ABBOTT-10P-087-0677377-00

PATIENT
  Sex: Male
  Weight: 62 kg

DRUGS (5)
  1. HUMIRA [Suspect]
     Indication: PSORIATIC ARTHROPATHY
     Route: 058
     Dates: start: 20100319
  2. BETAMETHASONE BUTYRATE PROPIONATE [Concomitant]
     Indication: PSORIATIC ARTHROPATHY
     Route: 062
  3. MAXACALCITOL [Concomitant]
     Indication: PSORIATIC ARTHROPATHY
     Route: 062
  4. FLUOCINONIDE [Concomitant]
     Indication: PSORIATIC ARTHROPATHY
     Route: 062
  5. OLOPATADINE HYDROCHLORIDE [Concomitant]
     Indication: PRURITUS
     Route: 048
     Dates: start: 20100528

REACTIONS (1)
  - CEREBRAL INFARCTION [None]
